FAERS Safety Report 6044770-8 (Version None)
Quarter: 2009Q1

REPORT INFORMATION
  Report Type: 
  Country: None (occurrence: None)
  Receive Date: 20090120
  Receipt Date: 20090112
  Transmission Date: 20090719
  Serious: No
  Sender: FDA-Public Use
  Company Number: US-B.I. PHARMACEUTICALS,INC./RIDGEFIELD-2009-BP-00389BP

PATIENT
  Sex: Female

DRUGS (2)
  1. SPIRIVA [Suspect]
     Indication: CHRONIC OBSTRUCTIVE PULMONARY DISEASE
     Dosage: 18MCG
     Route: 055
     Dates: start: 20060501
  2. SYNTHROID [Concomitant]
     Indication: THYROID DISORDER

REACTIONS (7)
  - ARTHRITIS [None]
  - CATARACT [None]
  - DRY EYE [None]
  - DRY MOUTH [None]
  - OSTEOARTHRITIS [None]
  - SPONDYLITIS [None]
  - URINARY TRACT DISORDER [None]
